FAERS Safety Report 7376414-7 (Version None)
Quarter: 2011Q1

REPORT INFORMATION
  Report Type: 
  Country: None (occurrence: None)
  Receive Date: 20110316
  Receipt Date: 20110303
  Transmission Date: 20110831
  Serious: Yes (Hospitalization)
  Sender: FDA-Public Use
  Company Number: DSU-2011-01600

PATIENT
  Age: 68 Year
  Sex: Male
  Weight: 77.1115 kg

DRUGS (3)
  1. LIPITOR [Concomitant]
  2. ASPIRIN [Concomitant]
  3. BENICAR HCT [Suspect]
     Indication: HYPERTENSION
     Dosage: 40/12.5MG (QD), PER ORAL
     Route: 048
     Dates: start: 20060101, end: 20110212

REACTIONS (5)
  - MENINGITIS VIRAL [None]
  - INAPPROPRIATE ANTIDIURETIC HORMONE SECRETION [None]
  - NAUSEA [None]
  - MENINGITIS FUNGAL [None]
  - COUGH [None]
